FAERS Safety Report 21782792 (Version 1)
Quarter: 2022Q4

REPORT INFORMATION
  Report Type: Spontaneous
  Country: US (occurrence: None)
  Receive Date: 20221225
  Receipt Date: 20221225
  Transmission Date: 20230112
  Serious: No
  Sender: FDA-Public Use
  Company Number: None

PATIENT
  Age: 44 Year
  Sex: Female
  Weight: 76.5 kg

DRUGS (1)
  1. BELSOMRA [Suspect]
     Active Substance: SUVOREXANT
     Indication: Insomnia
     Dates: start: 20221010, end: 20221011

REACTIONS (4)
  - Panic attack [None]
  - Night sweats [None]
  - Fear [None]
  - Sleep disorder [None]

NARRATIVE: CASE EVENT DATE: 20221010
